FAERS Safety Report 17363055 (Version 1)
Quarter: 2020Q1

REPORT INFORMATION
  Report Type: Spontaneous
  Country: US (occurrence: US)
  Receive Date: 20200203
  Receipt Date: 20200203
  Transmission Date: 20200409
  Serious: Yes (Hospitalization)
  Sender: FDA-Public Use
  Company Number: US-JNJFOC-20200152758

PATIENT
  Age: 63 Year
  Sex: Male

DRUGS (1)
  1. INVOKANA [Suspect]
     Active Substance: CANAGLIFLOZIN
     Indication: TYPE 2 DIABETES MELLITUS
     Dosage: 100 MG AND 300 MG
     Route: 048
     Dates: end: 20171002

REACTIONS (4)
  - Limb amputation [Unknown]
  - Gangrene [Unknown]
  - Diabetic foot infection [Unknown]
  - Sepsis [Unknown]

NARRATIVE: CASE EVENT DATE: 20170601
